FAERS Safety Report 22392830 (Version 1)
Quarter: 2023Q2

REPORT INFORMATION
  Report Type: Spontaneous
  Country: US (occurrence: None)
  Receive Date: 20230531
  Receipt Date: 20230531
  Transmission Date: 20230722
  Serious: Yes (Other)
  Sender: FDA-Public Use
  Company Number: None

PATIENT
  Sex: Female

DRUGS (6)
  1. CAPECITABINE [Suspect]
     Active Substance: CAPECITABINE
  2. BYSTOLIC [Concomitant]
     Active Substance: NEBIVOLOL HYDROCHLORIDE
  3. CALCIUM [Concomitant]
  4. METHOCARBAMOL [Concomitant]
     Active Substance: METHOCARBAMOL
  5. ONDANSETRON [Concomitant]
     Active Substance: ONDANSETRON
  6. XGEVA [Concomitant]
     Active Substance: DENOSUMAB

REACTIONS (2)
  - Surgery [None]
  - Therapy interrupted [None]
